FAERS Safety Report 7085652-2 (Version None)
Quarter: 2010Q4

REPORT INFORMATION
  Report Type: 
  Country: None (occurrence: None)
  Receive Date: 20101105
  Receipt Date: 20101104
  Transmission Date: 20110411
  Serious: Yes (Other)
  Sender: FDA-Public Use
  Company Number: DE-PFIZER INC-2010128705

PATIENT
  Age: 39 Year
  Sex: Female

DRUGS (2)
  1. GENOTROPIN [Suspect]
     Dosage: 0.2 UNK, UNK
     Dates: start: 20100901
  2. DESMOPRESSIN [Suspect]
     Dosage: UNK

REACTIONS (4)
  - HEADACHE [None]
  - HYPONATRAEMIA [None]
  - NAUSEA [None]
  - VOMITING [None]
